FAERS Safety Report 5032855-4 (Version None)
Quarter: 2006Q2

REPORT INFORMATION
  Report Type: 
  Country: None (occurrence: None)
  Receive Date: 20060622
  Receipt Date: 20060411
  Transmission Date: 20061013
  Serious: Yes (Life-Threatening, Hospitalization, Other)
  Sender: FDA-Public Use
  Company Number: BE-GLAXOSMITHKLINE-B0421007A

PATIENT
  Age: 50 Year
  Sex: Male
  Weight: 135 kg

DRUGS (4)
  1. ZELITREX [Suspect]
     Indication: HERPES SIMPLEX
     Dosage: 500MG PER DAY
     Route: 048
     Dates: start: 20051120, end: 20060220
  2. CORTICOSTEROIDS [Concomitant]
     Indication: INTERTRIGO
  3. TRAZOLAN [Concomitant]
     Indication: DEPRESSION
     Dosage: 100MG PER DAY
     Route: 048
     Dates: start: 20030101
  4. AMLOR [Concomitant]
     Indication: HYPERTENSION
     Dosage: 10MG PER DAY
     Route: 048
     Dates: start: 20040101

REACTIONS (1)
  - HAEMOLYTIC ANAEMIA [None]
